FAERS Safety Report 5187089-X (Version None)
Quarter: 2006Q4

REPORT INFORMATION
  Report Type: 
  Country: None (occurrence: None)
  Receive Date: 20061214
  Receipt Date: 20061129
  Transmission Date: 20070319
  Serious: Yes (Hospitalization)
  Sender: FDA-Public Use
  Company Number: S06-UKI-05127-01

PATIENT
  Age: 86 Year
  Sex: Female

DRUGS (5)
  1. ESCITALOPRAM [Suspect]
  2. VENTOLIN [Concomitant]
  3. SYMBICORT [Concomitant]
  4. COZAAR (LOSTARN POTASSIUM) [Concomitant]
  5. SPIRONOLACTONE [Concomitant]

REACTIONS (1)
  - HYPONATRAEMIA [None]
